FAERS Safety Report 9677972 (Version 2)
Quarter: 2014Q2

REPORT INFORMATION
  Report Type: Spontaneous
  Country: US (occurrence: US)
  Receive Date: 20131108
  Receipt Date: 20140502
  Transmission Date: 20141212
  Serious: Yes (Hospitalization)
  Sender: FDA-Public Use
  Company Number: US-BAYER-2013-133420

PATIENT
  Age: 22 Year
  Sex: Female
  Weight: 67.57 kg

DRUGS (23)
  1. LEVAQUIN [Concomitant]
  2. OXYGEN [Concomitant]
  3. YAZ [Suspect]
     Indication: CONTRACEPTION
     Dosage: UNK
     Dates: start: 200908, end: 200911
  4. YAZ [Suspect]
     Indication: MENSTRUAL CYCLE MANAGEMENT
     Dosage: UNK
     Dates: start: 201007, end: 201011
  5. YAZ [Suspect]
     Indication: CONTRACEPTION
     Dosage: UNK
     Dates: start: 201007, end: 201008
  6. GIANVI [Suspect]
     Indication: CONTRACEPTION
     Dosage: UNK
     Dates: start: 201008, end: 201011
  7. GIANVI [Suspect]
     Indication: MENSTRUAL CYCLE MANAGEMENT
  8. ADDERALL [Concomitant]
     Dosage: UNK
     Dates: start: 2007
  9. AMPHETAMINE SALTS [Concomitant]
     Dosage: UNK
     Dates: start: 2007
  10. VYVANSE [Concomitant]
     Indication: ATTENTION DEFICIT/HYPERACTIVITY DISORDER
     Dosage: 60 MG, 1 CAPSULE EVERY MORNING
  11. VYVANSE [Concomitant]
     Indication: ATTENTION DEFICIT/HYPERACTIVITY DISORDER
     Dosage: 40 MG, UNK
  12. SUMATRIPTAN SUCCINATE [Concomitant]
     Dosage: 100 MG, UNK
  13. TOPIMAX [Concomitant]
     Indication: MIGRAINE
     Dosage: 1 DF, DAILY
     Dates: start: 20100826, end: 20101106
  14. TOPIRAMATE [Concomitant]
     Dosage: 25 MG, UNK
  15. FLUVIRIN [Concomitant]
  16. SUMATRIPTAN [Concomitant]
     Indication: MIGRAINE
     Dosage: 1 DF, PRN
  17. PHENAZOPYRIDINE [Concomitant]
     Indication: URINARY TRACT INFECTION
     Dosage: 200 MG, 1 TABLET DAILY
     Dates: start: 20101101, end: 20101103
  18. SULFAMETHOXAZOLE/TRIMETHOPRIM [Concomitant]
  19. BACTRIM DS [Concomitant]
     Indication: URINARY TRACT INFECTION
     Dosage: UNK
     Dates: start: 20101101, end: 20101103
  20. CIPROFLOXACIN HCL [Concomitant]
     Indication: URINARY TRACT INFECTION
     Dosage: 500 MG, BID, 1 TABLET
     Dates: start: 20101103, end: 20101106
  21. DARVOCET [Concomitant]
     Indication: DYSURIA
     Dosage: 1 TAB EVERY 4-6 HRS, PRN
     Dates: start: 20101103, end: 20101106
  22. ONDANSETRON [Concomitant]
     Indication: NAUSEA
     Dosage: 4 MG, TABLET PRN
  23. PROPOXYPHENE HCL AND ACETAMINOPHEN [Concomitant]

REACTIONS (7)
  - Pulmonary embolism [Recovered/Resolved]
  - Injury [Recovered/Resolved]
  - Pain [Recovered/Resolved]
  - Anxiety [None]
  - Anhedonia [None]
  - Pain [None]
  - Mental disorder [None]
